FAERS Safety Report 18550391 (Version 5)
Quarter: 2023Q1

REPORT INFORMATION
  Report Type: Spontaneous
  Country: US (occurrence: US)
  Receive Date: 20201126
  Receipt Date: 20230103
  Transmission Date: 20230417
  Serious: Yes (Other)
  Sender: FDA-Public Use
  Company Number: US-PFIZER INC-2020464852

PATIENT
  Age: 79 Year
  Sex: Female
  Weight: 54.43 kg

DRUGS (3)
  1. XELJANZ [Suspect]
     Active Substance: TOFACITINIB CITRATE
     Indication: Rheumatoid arthritis
     Dosage: 5 MG, 2X/DAY
     Route: 048
  2. LIPITOR [Concomitant]
     Active Substance: ATORVASTATIN CALCIUM
     Indication: Blood cholesterol abnormal
     Dosage: UNK
  3. PROZAC [Concomitant]
     Active Substance: FLUOXETINE HYDROCHLORIDE
     Indication: Depression
     Dosage: UNK [I THINK 20 MG]

REACTIONS (6)
  - Cervical vertebral fracture [Unknown]
  - Eye operation [Unknown]
  - Intentional product use issue [Unknown]
  - COVID-19 [Unknown]
  - Road traffic accident [Unknown]
  - Nervousness [Unknown]

NARRATIVE: CASE EVENT DATE: 20200101
